FAERS Safety Report 6414318-4 (Version None)
Quarter: 2009Q4

REPORT INFORMATION
  Report Type: 
  Country: None (occurrence: None)
  Receive Date: 20091021
  Receipt Date: 20091009
  Transmission Date: 20100525
  Serious: Yes (Hospitalization)
  Sender: FDA-Public Use
  Company Number: CIP09002837

PATIENT
  Age: 70 Year
  Sex: Female

DRUGS (2)
  1. ACTONEL [Suspect]
     Dosage: 35 MG ONCE WEEKLY, ORAL
     Route: 048
     Dates: start: 20060101
  2. LIPITOR [Concomitant]

REACTIONS (3)
  - BONE PAIN [None]
  - FEMUR FRACTURE [None]
  - WALKING AID USER [None]
